FAERS Safety Report 5564224-2 (Version None)
Quarter: 2007Q4

REPORT INFORMATION
  Report Type: 
  Country: None (occurrence: None)
  Receive Date: 20071212
  Receipt Date: 20071130
  Transmission Date: 20080405
  Serious: Yes (Death)
  Sender: FDA-Public Use
  Company Number: 2007US002754

PATIENT
  Age: 50 Year
  Sex: Female
  Weight: 101.1 kg

DRUGS (22)
  1. PROGRAF [Suspect]
     Indication: LIVER TRANSPLANT
     Dosage: 4 MG, BID, ORAL; 2 MG, BID, ORAL; 1 MG, BID, ORAL; 0.5 MG
     Route: 048
     Dates: end: 20070814
  2. PROGRAF [Suspect]
     Indication: LIVER TRANSPLANT
     Dosage: 4 MG, BID, ORAL; 2 MG, BID, ORAL; 1 MG, BID, ORAL; 0.5 MG
     Route: 048
     Dates: end: 20071007
  3. PROGRAF [Suspect]
     Indication: LIVER TRANSPLANT
     Dosage: 4 MG, BID, ORAL; 2 MG, BID, ORAL; 1 MG, BID, ORAL; 0.5 MG
     Route: 048
     Dates: start: 20070818
  4. PROGRAF [Suspect]
     Indication: LIVER TRANSPLANT
     Dosage: 4 MG, BID, ORAL; 2 MG, BID, ORAL; 1 MG, BID, ORAL; 0.5 MG
     Route: 048
     Dates: start: 20071008
  5. PREDNISOLONE ACETATE [Concomitant]
  6. CELLCEPT [Concomitant]
  7. CARDIZEM [Concomitant]
  8. NORVASC [Concomitant]
  9. HYDRALAZINE (HYDRALAZINE HYDROCHLORIDE) [Concomitant]
  10. CLONIDINE [Concomitant]
  11. METAXALONE [Concomitant]
  12. CELEXA [Concomitant]
  13. LANTUS [Concomitant]
  14. NOVOLOG [Concomitant]
  15. ROCALTROL [Concomitant]
  16. ACTONEL [Concomitant]
  17. VALGANCICLOVIR HCL [Concomitant]
  18. URSODIOL (URSODEOXYCHLOIC ACID) [Concomitant]
  19. LACTULOSE [Concomitant]
  20. TUMS [Concomitant]
  21. RIFAXIMIN (RIFAXIMIN) [Concomitant]
  22. ERGOCALCIFEROL (ERGOCALCIFEROL) [Concomitant]

REACTIONS (18)
  - BACK INJURY [None]
  - BACTERIAL INFECTION [None]
  - BLOOD CULTURE POSITIVE [None]
  - BLOOD GLUCOSE FLUCTUATION [None]
  - CULTURE URINE POSITIVE [None]
  - DRUG LEVEL INCREASED [None]
  - FALL [None]
  - HEPATIC ENCEPHALOPATHY [None]
  - HEPATIC FAILURE [None]
  - HEPATITIS ACUTE [None]
  - HYPOGLYCAEMIA [None]
  - INTERNATIONAL NORMALISED RATIO INCREASED [None]
  - LIVER TRANSPLANT REJECTION [None]
  - MENTAL STATUS CHANGES [None]
  - MORGANELLA INFECTION [None]
  - OSTEOPOROSIS [None]
  - PERICARDIAL EFFUSION [None]
  - RENAL FAILURE ACUTE [None]
